FAERS Safety Report 20204114 (Version 3)
Quarter: 2022Q2

REPORT INFORMATION
  Report Type: Report from Study
  Country: NL (occurrence: NL)
  Receive Date: 20211220
  Receipt Date: 20220626
  Transmission Date: 20220721
  Serious: Yes (Hospitalization)
  Sender: FDA-Public Use
  Company Number: NL-ABBVIE-19S-114-2783105-00

PATIENT
  Sex: Male
  Weight: 60 kg

DRUGS (23)
  1. CARBIDOPA\LEVODOPA [Suspect]
     Active Substance: CARBIDOPA\LEVODOPA
     Indication: Parkinson^s disease
     Dosage: 16 HOUR ADMINISTRATION MD 12 CD 3.4 ED 3.0
     Route: 050
     Dates: start: 20190429, end: 20190521
  2. CARBIDOPA\LEVODOPA [Suspect]
     Active Substance: CARBIDOPA\LEVODOPA
     Dosage: DECREASED THE CONTINUOUS DOSE
     Route: 050
     Dates: start: 20190521, end: 2019
  3. CARBIDOPA\LEVODOPA [Suspect]
     Active Substance: CARBIDOPA\LEVODOPA
     Dosage: MD: 12.0, CD: 3.4, ED: 3.0; 16 HOUR ADMINISTRATION
     Route: 050
     Dates: start: 2019, end: 2019
  4. CARBIDOPA\LEVODOPA [Suspect]
     Active Substance: CARBIDOPA\LEVODOPA
     Dosage: CONTINUOUS DOSE DECREASED WITH 0.1 ML
     Route: 050
     Dates: start: 201907, end: 2019
  5. CARBIDOPA\LEVODOPA [Suspect]
     Active Substance: CARBIDOPA\LEVODOPA
     Dosage: MD: 12.0, CD: 3.1, ED: 3.0; 16 HOUR ADMINISTRATION?DOSE DECREASED
     Route: 050
     Dates: start: 2019, end: 2019
  6. CARBIDOPA\LEVODOPA [Suspect]
     Active Substance: CARBIDOPA\LEVODOPA
     Dosage: MD: 12.0, CD: 3.0, ED: 3.0; 16 HOUR ADMINISTRATION?DOSE DECREASED
     Route: 050
     Dates: start: 2019, end: 2019
  7. CARBIDOPA\LEVODOPA [Suspect]
     Active Substance: CARBIDOPA\LEVODOPA
     Dosage: MD: 11.5, CD: 2.8 ED: 3.0; 16 HOUR ADMINISTRATION
     Route: 050
     Dates: start: 2019, end: 2019
  8. CARBIDOPA\LEVODOPA [Suspect]
     Active Substance: CARBIDOPA\LEVODOPA
     Dosage: MD: 11.5, CD: 2.6 ED: 3.0; 16 HOUR ADMINISTRATION
     Route: 050
     Dates: start: 2019, end: 2019
  9. CARBIDOPA\LEVODOPA [Suspect]
     Active Substance: CARBIDOPA\LEVODOPA
     Dosage: MD: 11.5 , CD: 2.4 ED: 3.0
     Route: 050
     Dates: start: 2019, end: 2019
  10. CARBIDOPA\LEVODOPA [Suspect]
     Active Substance: CARBIDOPA\LEVODOPA
     Dosage: CD: FROM 2.4 ML TO 2.3 ML; MD: 11.5 ML; ED: 3.0
     Route: 050
  11. CARBIDOPA\LEVODOPA [Suspect]
     Active Substance: CARBIDOPA\LEVODOPA
     Dosage: MD 11.5 ML; CD 2.2 ML/H; ED 2.5 ML
     Route: 050
  12. CARBIDOPA\LEVODOPA [Suspect]
     Active Substance: CARBIDOPA\LEVODOPA
     Dosage: MD: 11.5 ML; CD: 2.3 ML/HR; ED: 3.0 ML
     Route: 050
  13. CARBIDOPA\LEVODOPA [Suspect]
     Active Substance: CARBIDOPA\LEVODOPA
     Dosage: MD 11.5 ML; CD 2.2 ML/H; ED 2.0 ML
     Route: 050
  14. CARBIDOPA\LEVODOPA [Suspect]
     Active Substance: CARBIDOPA\LEVODOPA
     Dosage: MD 11.5 ML; CD 2.2 ML/H; ED 2.5 ML
     Route: 050
  15. CARBIDOPA\LEVODOPA [Suspect]
     Active Substance: CARBIDOPA\LEVODOPA
     Dosage: MD 11.5 ML; CD 2.2 ML/H; ED 2.0 ML
     Route: 050
  16. CARBIDOPA\LEVODOPA [Suspect]
     Active Substance: CARBIDOPA\LEVODOPA
     Dosage: CD: 2.3 ML/H
     Route: 050
  17. CARBIDOPA\LEVODOPA [Suspect]
     Active Substance: CARBIDOPA\LEVODOPA
     Dosage: MD: 11.0 ML, CD: 2.3 ML/H , ED: 2.0 ML
     Route: 050
  18. CARBIDOPA\LEVODOPA [Suspect]
     Active Substance: CARBIDOPA\LEVODOPA
     Dosage: MD: 11.0 ML, CD: 2.4 ML/H , ED: 2.0 ML?REMAINS AT 16 HOURS
     Route: 050
  19. CARBIDOPA\LEVODOPA [Concomitant]
     Active Substance: CARBIDOPA\LEVODOPA
     Indication: Parkinson^s disease
     Dosage: RETARD
  20. VITAMIN D [Concomitant]
     Active Substance: VITAMIN D NOS
     Indication: Product used for unknown indication
  21. RIVOTRIL [Concomitant]
     Active Substance: CLONAZEPAM
     Indication: Product used for unknown indication
  22. FOLIC ACID [Concomitant]
     Active Substance: FOLIC ACID
     Indication: Product used for unknown indication
  23. CONSTELLA LINACLOTIDE [Concomitant]
     Indication: Constipation

REACTIONS (47)
  - Gastric disorder [Recovered/Resolved]
  - Fibroma [Recovered/Resolved]
  - Blood pressure abnormal [Recovering/Resolving]
  - Abnormal faeces [Unknown]
  - Bradyphrenia [Not Recovered/Not Resolved]
  - Musculoskeletal stiffness [Not Recovered/Not Resolved]
  - Weight fluctuation [Unknown]
  - Abnormal dreams [Not Recovered/Not Resolved]
  - Weight decreased [Unknown]
  - Device dislocation [Unknown]
  - Dyskinesia [Recovered/Resolved]
  - Hallucination [Recovered/Resolved]
  - Freezing phenomenon [Not Recovered/Not Resolved]
  - On and off phenomenon [Not Recovered/Not Resolved]
  - Dizziness [Recovering/Resolving]
  - Hyperkinesia [Not Recovered/Not Resolved]
  - Hallucination [Recovered/Resolved]
  - Sleep disorder [Recovered/Resolved]
  - Therapeutic product effect incomplete [Recovered/Resolved]
  - Hypophagia [Recovering/Resolving]
  - Diarrhoea [Recovered/Resolved]
  - Muscle rigidity [Not Recovered/Not Resolved]
  - Bradykinesia [Not Recovered/Not Resolved]
  - Hallucination [Not Recovered/Not Resolved]
  - Stoma site discharge [Recovered/Resolved]
  - Constipation [Recovering/Resolving]
  - Memory impairment [Not Recovered/Not Resolved]
  - Fibroma [Not Recovered/Not Resolved]
  - Gait disturbance [Not Recovered/Not Resolved]
  - Tooth disorder [Not Recovered/Not Resolved]
  - Weight increased [Recovered/Resolved]
  - Impaired quality of life [Unknown]
  - Somnolence [Not Recovered/Not Resolved]
  - Musculoskeletal stiffness [Not Recovered/Not Resolved]
  - Abnormal faeces [Recovered/Resolved]
  - Loss of personal independence in daily activities [Not Recovered/Not Resolved]
  - Bowel movement irregularity [Not Recovered/Not Resolved]
  - Dyskinesia [Recovering/Resolving]
  - Flatulence [Not Recovered/Not Resolved]
  - Faeces hard [Recovered/Resolved]
  - Device difficult to use [Recovered/Resolved]
  - Feeding disorder [Recovered/Resolved]
  - Faecaloma [Recovered/Resolved]
  - Weight decreased [Not Recovered/Not Resolved]
  - Gait disturbance [Not Recovered/Not Resolved]
  - Stress [Recovering/Resolving]
  - Tension [Recovering/Resolving]

NARRATIVE: CASE EVENT DATE: 20190101
